FAERS Safety Report 6669230-2 (Version None)
Quarter: 2010Q2

REPORT INFORMATION
  Report Type: 
  Country: None (occurrence: None)
  Receive Date: 20100406
  Receipt Date: 20100326
  Transmission Date: 20101027
  Serious: Yes (Other)
  Sender: FDA-Public Use
  Company Number: US-JNJFOC-20100308611

PATIENT
  Sex: Female
  Weight: 49.9 kg

DRUGS (3)
  1. TOPAMAX [Suspect]
     Indication: MIGRAINE PROPHYLAXIS
     Route: 048
  2. IMITREX [Concomitant]
     Indication: MIGRAINE
     Route: 048
  3. XANAX [Concomitant]
     Indication: ANXIETY
     Route: 048

REACTIONS (3)
  - MACULAR OEDEMA [None]
  - RETINAL OEDEMA [None]
  - VISUAL IMPAIRMENT [None]
